FAERS Safety Report 8936444 (Version 2)
Quarter: 2012Q4

REPORT INFORMATION
  Report Type: 
  Country: JP (occurrence: JP)
  Receive Date: 20121130
  Receipt Date: 20121211
  Transmission Date: 20130627
  Serious: Yes (Other)
  Sender: FDA-Public Use
  Company Number: JP-PFIZER INC-2012298372

PATIENT
  Age: 78 Year
  Sex: Female

DRUGS (6)
  1. HALCION [Suspect]
     Indication: INSOMNIA
     Route: 048
  2. BAYASPIRIN [Concomitant]
  3. CRESTOR [Concomitant]
  4. THYRADIN [Concomitant]
  5. MAGMITT [Concomitant]
  6. ALLEGRA [Concomitant]

REACTIONS (1)
  - Compression fracture [Unknown]
